FAERS Safety Report 8845343 (Version 1)
Quarter: 2012Q4

REPORT INFORMATION
  Report Type: 
  Country: FR (occurrence: FR)
  Receive Date: 20121017
  Receipt Date: 20121017
  Transmission Date: 20130627
  Serious: Yes (Other)
  Sender: FDA-Public Use
  Company Number: FR-PFIZER INC-2012256229

PATIENT
  Age: 70 Year
  Sex: Male

DRUGS (16)
  1. CORDARONE [Suspect]
     Indication: ATRIAL FIBRILLATION
     Dosage: 400mg daily
     Route: 048
     Dates: start: 20120819, end: 20120821
  2. CORDARONE [Suspect]
     Dosage: 200 mg in the morning and 200 mg in the evening
     Route: 048
     Dates: start: 20120821, end: 20120829
  3. CORDARONE [Suspect]
     Dosage: 200 mg daily
     Route: 048
     Dates: start: 20120830, end: 20120912
  4. KARDEGIC [Concomitant]
     Dosage: UNK
  5. PREVISCAN [Concomitant]
     Dosage: UNK
  6. PREVISCAN [Concomitant]
     Dosage: 0.5 DF, 0.5 DF and 0.25 DF, alternate days
  7. COLCHIMAX [Concomitant]
     Dosage: UNK
  8. TRIATEC [Concomitant]
     Dosage: UNK
  9. CARDENSIEL [Concomitant]
     Dosage: UNK
     Dates: start: 201208
  10. CARDENSIEL [Concomitant]
     Dosage: 2.5 mg/day
  11. LASILIX [Concomitant]
     Dosage: UNK
  12. XATRAL [Concomitant]
     Dosage: UNK
  13. OMACOR [Concomitant]
     Dosage: UNK
  14. PLAVIX [Concomitant]
     Dosage: UNK
     Dates: start: 201208
  15. PLAVIX [Concomitant]
     Dosage: decreased to 75 mg daily
  16. INIPOMP [Concomitant]
     Dosage: UNK

REACTIONS (4)
  - Diarrhoea [Recovered/Resolved]
  - Nausea [Recovered/Resolved]
  - Decreased appetite [Recovered/Resolved]
  - Weight decreased [Recovered/Resolved]
